FAERS Safety Report 11276218 (Version 2)
Quarter: 2015Q3

REPORT INFORMATION
  Report Type: Spontaneous
  Country: US (occurrence: US)
  Receive Date: 20150716
  Receipt Date: 20150819
  Transmission Date: 20151125
  Serious: Yes (Death, Hospitalization, Other)
  Sender: FDA-Public Use
  Company Number: US-009507513-1507USA007094

PATIENT
  Sex: Female
  Weight: 52.15 kg

DRUGS (2)
  1. JANUVIA [Suspect]
     Active Substance: SITAGLIPTIN PHOSPHATE
     Dosage: 50 MG, QD
     Route: 048
     Dates: start: 201108, end: 20130819
  2. JANUVIA [Suspect]
     Active Substance: SITAGLIPTIN PHOSPHATE
     Indication: TYPE 2 DIABETES MELLITUS
     Dosage: 25 MG, QD
     Route: 048
     Dates: start: 201108, end: 20140210

REACTIONS (27)
  - Pneumonia [Unknown]
  - Renal cyst [Unknown]
  - Adenocarcinoma pancreas [Unknown]
  - Iron deficiency anaemia [Not Recovered/Not Resolved]
  - Cataract operation [Unknown]
  - Tonsillectomy [Unknown]
  - Pancreatic carcinoma metastatic [Unknown]
  - Glaucoma [Not Recovered/Not Resolved]
  - Death [Fatal]
  - Pancreatic stent placement [Unknown]
  - Treatment noncompliance [Unknown]
  - Drug intolerance [Unknown]
  - Adrenal mass [Unknown]
  - Asthma [Unknown]
  - Hypothyroidism [Unknown]
  - Acute kidney injury [Not Recovered/Not Resolved]
  - Diabetic retinopathy [Unknown]
  - Hyperkalaemia [Not Recovered/Not Resolved]
  - Diabetes mellitus inadequate control [Unknown]
  - Cerebrovascular accident [Unknown]
  - Chest pain [Recovered/Resolved]
  - Drug ineffective [Unknown]
  - Diarrhoea [Unknown]
  - Vomiting [Not Recovered/Not Resolved]
  - Nausea [Not Recovered/Not Resolved]
  - Chronic obstructive pulmonary disease [Not Recovered/Not Resolved]
  - Pleural effusion [Unknown]

NARRATIVE: CASE EVENT DATE: 2011
